FAERS Safety Report 4536304-1 (Version None)
Quarter: 2004Q4

REPORT INFORMATION
  Report Type: 
  Country: None (occurrence: None)
  Receive Date: 20041223
  Receipt Date: 20040617
  Transmission Date: 20050328
  Serious: No
  Sender: FDA-Public Use
  Company Number: US-GLAXOSMITHKLINE-A0515128A

PATIENT
  Age: 57 Year
  Sex: Female

DRUGS (2)
  1. FLONASE [Suspect]
     Dosage: 2SPR PER DAY
     Route: 045
  2. CLARITIN [Concomitant]

REACTIONS (1)
  - PAIN [None]
